FAERS Safety Report 6675426-6 (Version None)
Quarter: 2010Q2

REPORT INFORMATION
  Report Type: 
  Country: None (occurrence: None)
  Receive Date: 20100409
  Receipt Date: 20100401
  Transmission Date: 20101027
  Serious: Yes (Other)
  Sender: FDA-Public Use
  Company Number: IL-PFIZER INC-2010026538

PATIENT
  Age: 48 Year
  Sex: Female

DRUGS (1)
  1. LIPITOR [Suspect]
     Indication: BLOOD CHOLESTEROL INCREASED
     Dosage: 10 MG, TWICE WEEKLY

REACTIONS (5)
  - DEPRESSION [None]
  - FLUSHING [None]
  - MIGRAINE [None]
  - MYALGIA [None]
  - VISUAL IMPAIRMENT [None]
